FAERS Safety Report 12975533 (Version 6)
Quarter: 2017Q4

REPORT INFORMATION
  Report Type: Report from Study
  Country: BR (occurrence: BR)
  Receive Date: 20161125
  Receipt Date: 20171124
  Transmission Date: 20180320
  Serious: Yes (Other)
  Sender: FDA-Public Use
  Company Number: BR-JNJFOC-20161121769

PATIENT
  Age: 44 Year
  Sex: Female
  Weight: 78 kg

DRUGS (6)
  1. SIMPONI [Suspect]
     Active Substance: GOLIMUMAB
     Indication: RHEUMATOID ARTHRITIS
     Route: 058
     Dates: start: 20161111
  2. TYLENOL [Concomitant]
     Active Substance: ACETAMINOPHEN
     Route: 065
  3. METICORTEN [Concomitant]
     Active Substance: PREDNISONE
     Route: 065
  4. METHOTREXATE. [Suspect]
     Active Substance: METHOTREXATE
     Indication: PRODUCT USED FOR UNKNOWN INDICATION
     Route: 065
  5. FOLIC ACID. [Concomitant]
     Active Substance: FOLIC ACID
     Route: 065
  6. PREDNISONE. [Concomitant]
     Active Substance: PREDNISONE
     Route: 065

REACTIONS (9)
  - Cellulitis [Not Recovered/Not Resolved]
  - Urinary tract infection [Unknown]
  - Herpes virus infection [Unknown]
  - Fluid retention [Not Recovered/Not Resolved]
  - Carpal tunnel syndrome [Unknown]
  - Renal disorder [Unknown]
  - Weight increased [Not Recovered/Not Resolved]
  - Arthralgia [Unknown]
  - Nasopharyngitis [Unknown]

NARRATIVE: CASE EVENT DATE: 201611
